FAERS Safety Report 6566660-4 (Version None)
Quarter: 2010Q1

REPORT INFORMATION
  Report Type: 
  Country: None (occurrence: None)
  Receive Date: 20100202
  Receipt Date: 20100125
  Transmission Date: 20100710
  Serious: Yes (Hospitalization)
  Sender: FDA-Public Use
  Company Number: NL-ROCHE-681448

PATIENT
  Sex: Male

DRUGS (3)
  1. CAPECITABINE [Suspect]
     Indication: COLORECTAL CANCER
     Dosage: DATE OF LAST CYCLE: 11 SEP 2009
     Route: 048
     Dates: start: 20090529
  2. OXALIPLATIN [Suspect]
     Indication: COLORECTAL CANCER
     Dosage: NUMBER OF LAST CYCLE: 6; DATE OF LAST CYCLE: 11 SEP 2009
     Route: 042
     Dates: start: 20090529
  3. PARACETAMOL [Concomitant]

REACTIONS (3)
  - EYE PAIN [None]
  - HEADACHE [None]
  - PYREXIA [None]
